FAERS Safety Report 6310733-8 (Version None)
Quarter: 2009Q3

REPORT INFORMATION
  Report Type: 
  Country: None (occurrence: None)
  Receive Date: 20090811
  Receipt Date: 20090615
  Transmission Date: 20100115
  Serious: No
  Sender: FDA-Public Use
  Company Number: 1000006818

PATIENT
  Age: 48 Year
  Sex: Female

DRUGS (15)
  1. SAVELLA [Suspect]
     Indication: FIBROMYALGIA
     Dosage: SEE IMAGE
     Route: 048
     Dates: start: 20090501, end: 20090501
  2. SAVELLA [Suspect]
     Indication: FIBROMYALGIA
     Dosage: SEE IMAGE
     Route: 048
     Dates: start: 20090501, end: 20090501
  3. SAVELLA [Suspect]
     Indication: FIBROMYALGIA
     Dosage: SEE IMAGE
     Route: 048
     Dates: start: 20090501, end: 20090501
  4. SAVELLA [Suspect]
     Indication: FIBROMYALGIA
     Dosage: SEE IMAGE
     Route: 048
     Dates: start: 20090501
  5. VIVELLE-DOT [Concomitant]
  6. REQUIP [Concomitant]
  7. FEMRING [Concomitant]
  8. CYTOMEL [Concomitant]
  9. THYROID TAB [Concomitant]
  10. LEVOXYL [Concomitant]
  11. XYREM [Concomitant]
  12. POTASSIUM CHLORIDE [Concomitant]
  13. TESTOSTERONE [Concomitant]
  14. PROGESTERONE [Concomitant]
  15. METANX [Concomitant]

REACTIONS (2)
  - MUSCLE SPASMS [None]
  - NECK PAIN [None]
